FAERS Safety Report 10578054 (Version 1)
Quarter: 2014Q4

REPORT INFORMATION
  Report Type: Report from Study
  Country: FR (occurrence: FR)
  Receive Date: 20141112
  Receipt Date: 20141112
  Transmission Date: 20150529
  Serious: Yes (Congenital Anomaly)
  Sender: FDA-Public Use
  Company Number: FR-ROCHE-1484828

PATIENT

DRUGS (3)
  1. NELFINAVIR [Suspect]
     Active Substance: NELFINAVIR
     Indication: PRODUCT USED FOR UNKNOWN INDICATION
     Route: 064
  2. ZALCITABINE [Suspect]
     Active Substance: ZALCITABINE
     Indication: PRODUCT USED FOR UNKNOWN INDICATION
     Route: 064
  3. SAQUINAVIR [Suspect]
     Active Substance: SAQUINAVIR
     Indication: PRODUCT USED FOR UNKNOWN INDICATION
     Route: 064

REACTIONS (8)
  - Congenital musculoskeletal anomaly [Unknown]
  - Congenital cardiovascular anomaly [Unknown]
  - Congenital genitourinary abnormality [Unknown]
  - Congenital eye disorder [Unknown]
  - Ear malformation [Unknown]
  - Congenital central nervous system anomaly [Unknown]
  - Cleft lip and palate [Unknown]
  - Foetal exposure during pregnancy [Unknown]
